FAERS Safety Report 6230242-4 (Version None)
Quarter: 2009Q2

REPORT INFORMATION
  Report Type: 
  Country: None (occurrence: None)
  Receive Date: 20090615
  Receipt Date: 20090608
  Transmission Date: 20091009
  Serious: Yes (Other)
  Sender: FDA-Public Use
  Company Number: BR-ABBOTT-09P-020-0578445-00

PATIENT
  Age: 14 Year
  Sex: Female

DRUGS (4)
  1. HUMIRA [Suspect]
     Indication: JUVENILE ARTHRITIS
     Route: 058
     Dates: start: 20081101, end: 20090101
  2. METHOTREXATE [Concomitant]
     Indication: JUVENILE ARTHRITIS
  3. PREDNISOLONE [Concomitant]
     Indication: JUVENILE ARTHRITIS
  4. FOLIC ACID [Concomitant]
     Indication: JUVENILE ARTHRITIS

REACTIONS (3)
  - AORTIC VALVE INCOMPETENCE [None]
  - CHEST PAIN [None]
  - NO THERAPEUTIC RESPONSE [None]
